FAERS Safety Report 9772540 (Version 1)
Quarter: 2013Q4

REPORT INFORMATION
  Report Type: Spontaneous
  Country: US (occurrence: None)
  Receive Date: 20131218
  Receipt Date: 20131218
  Transmission Date: 20140711
  Serious: Yes (Other)
  Sender: FDA-Public Use
  Company Number: 2013CT000104

PATIENT
  Age: 40 Year
  Sex: Female

DRUGS (1)
  1. KORLYM [Suspect]
     Indication: PITUITARY-DEPENDENT CUSHING^S SYNDROME
     Route: 048

REACTIONS (6)
  - Incorrect dose administered [None]
  - Oedema peripheral [None]
  - Abdominal pain upper [None]
  - Rash [None]
  - Hypersensitivity [None]
  - Pruritus [None]
